FAERS Safety Report 8788288 (Version 2)
Quarter: 2012Q4

REPORT INFORMATION
  Report Type: 
  Country: US (occurrence: US)
  Receive Date: 20120914
  Receipt Date: 20121008
  Transmission Date: 20130627
  Serious: No
  Sender: FDA-Public Use
  Company Number: US-VERTEX PHARMACEUTICAL INC.-AE-2012-010867

PATIENT
  Age: 60 Year
  Sex: Female

DRUGS (5)
  1. INCIVEK [Suspect]
     Indication: HEPATITIS C
     Dosage: 750 mg, tid
     Route: 048
     Dates: start: 20120713
  2. PEGASYS [Suspect]
     Indication: HEPATITIS C
     Dosage: 180 ?g/M
     Route: 058
     Dates: start: 20120713
  3. RIBAVIRIN [Suspect]
     Indication: HEPATITIS C
     Dosage: 200 mg, UNK
     Route: 048
     Dates: start: 20120713
  4. VASOTEC                            /00574902/ [Concomitant]
  5. HYDROCHLOROTHIAZID [Concomitant]

REACTIONS (6)
  - Pain [Unknown]
  - Adverse event [Unknown]
  - Fatigue [Unknown]
  - Anal pruritus [Not Recovered/Not Resolved]
  - Pruritus [Unknown]
  - Nausea [Unknown]
